APPROVED DRUG PRODUCT: ELIGLUSTAT TARTRATE
Active Ingredient: ELIGLUSTAT TARTRATE
Strength: EQ 84MG BASE
Dosage Form/Route: CAPSULE;ORAL
Application: A212420 | Product #001 | TE Code: AB
Applicant: UPSHER SMITH LABORATORIES LLC
Approved: May 2, 2023 | RLD: No | RS: No | Type: RX